FAERS Safety Report 24621396 (Version 2)
Quarter: 2024Q4

REPORT INFORMATION
  Report Type: Spontaneous
  Country: JP (occurrence: JP)
  Receive Date: 20241114
  Receipt Date: 20241129
  Transmission Date: 20250115
  Serious: Yes (Hospitalization)
  Sender: BOEHRINGER INGELHEIM
  Company Number: JP-NBI-2024-BI-062443

PATIENT
  Age: 9 Decade
  Sex: Female

DRUGS (11)
  1. SPIRIVA [Suspect]
     Active Substance: TIOTROPIUM BROMIDE MONOHYDRATE
     Indication: Asthma
     Dosage: 2 PUFFS AT A TIME
     Route: 055
  2. SPIRIVA [Suspect]
     Active Substance: TIOTROPIUM BROMIDE MONOHYDRATE
     Indication: Chronic obstructive pulmonary disease
  3. NIFEDIPINE [Suspect]
     Active Substance: NIFEDIPINE
     Indication: Hypertension
     Dosage: AFTER BREAKFAST AND DINNER
     Route: 048
  4. PRAVASTATIN SODIUM [Suspect]
     Active Substance: PRAVASTATIN SODIUM
     Indication: Dyslipidaemia
     Dosage: AFTER DINNER
     Route: 048
  5. DONEPEZIL [Suspect]
     Active Substance: DONEPEZIL
     Indication: Product used for unknown indication
     Dosage: AFTER DINNER
     Route: 048
  6. NIZATIDINE [Suspect]
     Active Substance: NIZATIDINE
     Indication: Product used for unknown indication
     Dosage: AFTER DINNER
     Route: 048
  7. TEPRENONE [Suspect]
     Active Substance: TEPRENONE
     Indication: Product used for unknown indication
     Dosage: AFTER BREAKFAST AND DINNER
     Route: 048
  8. DIETARY SUPPLEMENT [Suspect]
     Active Substance: DIETARY SUPPLEMENT
     Indication: Product used for unknown indication
     Dosage: 2 TABLETS/DAY, AFTER BREAKFAST AND DINNER
     Route: 048
  9. ISOSORBIDE DINITRATE [Suspect]
     Active Substance: ISOSORBIDE DINITRATE
     Indication: Product used for unknown indication
     Dosage: 1 SHEET PER DAY
     Route: 048
  10. FLUTICASONE PROPIONATE\FORMOTEROL FUMARATE [Suspect]
     Active Substance: FLUTICASONE PROPIONATE\FORMOTEROL FUMARATE
     Indication: Asthma
     Dosage: 2 PUFFS AT A TIME
     Route: 055
  11. FLUTICASONE PROPIONATE\FORMOTEROL FUMARATE [Suspect]
     Active Substance: FLUTICASONE PROPIONATE\FORMOTEROL FUMARATE
     Indication: Chronic obstructive pulmonary disease

REACTIONS (5)
  - Urinary tract infection [Unknown]
  - Hydronephrosis [Unknown]
  - Neurogenic bladder [Unknown]
  - Haematuria [Recovered/Resolved]
  - Decreased appetite [Unknown]
